FAERS Safety Report 7776342-9 (Version None)
Quarter: 2011Q3

REPORT INFORMATION
  Report Type: 
  Country: None (occurrence: None)
  Receive Date: 20110926
  Receipt Date: 20110920
  Transmission Date: 20111222
  Serious: Yes (Other)
  Sender: FDA-Public Use
  Company Number: US-JNJFOC-20110807181

PATIENT
  Sex: Male
  Weight: 47.63 kg

DRUGS (15)
  1. SPIRONOLACTONE [Concomitant]
     Indication: DIURETIC THERAPY
     Route: 048
     Dates: start: 20110730
  2. SPIRONOLACTONE [Concomitant]
     Route: 048
     Dates: start: 19910101
  3. LASIX [Concomitant]
     Indication: FLUID RETENTION
     Route: 048
     Dates: start: 19910101
  4. LASIX [Concomitant]
     Route: 048
     Dates: start: 20110723
  5. TOPROL-XL [Concomitant]
     Indication: BLOOD PRESSURE
     Route: 048
  6. SPIRONOLACTONE [Concomitant]
     Route: 048
     Dates: start: 19910101
  7. ZYTIGA [Suspect]
     Indication: PROSTATE CANCER
     Route: 048
     Dates: start: 20110701, end: 20110701
  8. LASIX [Concomitant]
     Route: 048
     Dates: start: 19910101
  9. TRAZODONE HYDROCHLORIDE [Concomitant]
     Indication: NERVOUSNESS
     Route: 065
  10. TRAZODONE HYDROCHLORIDE [Concomitant]
     Indication: FEELING JITTERY
     Route: 065
  11. PREDNISONE [Suspect]
     Indication: PROSTATE CANCER
     Route: 048
     Dates: start: 20110701
  12. TOPROL-XL [Concomitant]
     Route: 048
     Dates: start: 19910101
  13. LASIX [Concomitant]
     Indication: OEDEMA
     Route: 048
     Dates: start: 20110723
  14. SPIRONOLACTONE [Concomitant]
     Indication: BLOOD PRESSURE
     Route: 048
     Dates: start: 20110730
  15. ZYTIGA [Suspect]
     Route: 048
     Dates: start: 20110801

REACTIONS (13)
  - WEIGHT DECREASED [None]
  - PROSTATIC SPECIFIC ANTIGEN INCREASED [None]
  - FLUID RETENTION [None]
  - MUSCLE TWITCHING [None]
  - NERVOUSNESS [None]
  - DEPRESSED MOOD [None]
  - RESTLESS LEGS SYNDROME [None]
  - FATIGUE [None]
  - DRUG INEFFECTIVE [None]
  - SOMNOLENCE [None]
  - WEIGHT INCREASED [None]
  - PRURITUS [None]
  - FEELING JITTERY [None]
